FAERS Safety Report 8009165 (Version 7)
Quarter: 2013Q4

REPORT INFORMATION
  Report Type: Report from Study
  Country: JP (occurrence: JP)
  Receive Date: 20110624
  Receipt Date: 20131105
  Transmission Date: 20140711
  Serious: Yes (Other)
  Sender: FDA-Public Use
  Company Number: PHHY2010JP86569

PATIENT
  Age: 66 Year
  Sex: Male

DRUGS (20)
  1. AMN107 [Suspect]
     Indication: CHRONIC MYELOID LEUKAEMIA
     Dosage: 800 MG, DAILY
     Route: 048
     Dates: start: 20100325, end: 20100330
  2. AMN107 [Suspect]
     Dosage: 800 MG, DAILY
     Route: 048
     Dates: start: 20100616, end: 20100720
  3. AMN107 [Suspect]
     Dosage: 400 MG, DAILY
     Route: 048
     Dates: start: 20100818
  4. LANSOPRAZOLE [Concomitant]
     Indication: PROPHYLAXIS
     Dosage: 1 DF
     Route: 048
     Dates: start: 20100616, end: 20100803
  5. LANSOPRAZOLE [Concomitant]
     Dosage: 1 DF
     Route: 048
  6. LANSOPRAZOLE [Concomitant]
     Dosage: 1 DF
     Route: 048
     Dates: end: 20110319
  7. ALLEGRA [Concomitant]
     Indication: PROPHYLAXIS
     Dosage: 120 MG
     Route: 048
     Dates: start: 20100616
  8. ALLEGRA [Concomitant]
     Dosage: 120 MG
     Route: 048
  9. AMARYL [Concomitant]
     Indication: DIABETES MELLITUS
     Dosage: 1 MG
     Route: 048
     Dates: start: 20100707
  10. AMARYL [Concomitant]
     Dosage: 2 MG
     Route: 048
  11. AMARYL [Concomitant]
     Dosage: 3 MG
  12. MAGNESIUM OXIDE [Concomitant]
     Indication: PROPHYLAXIS
     Dosage: 0.99 G, UNK
     Route: 048
     Dates: start: 20100929, end: 20101026
  13. RHYTHMY [Concomitant]
     Indication: PROPHYLAXIS
     Dosage: 1 MG, UNK
     Route: 048
     Dates: start: 20101027, end: 20110217
  14. LAXOBERON [Concomitant]
     Indication: PROPHYLAXIS
     Route: 048
     Dates: start: 20101027
  15. ACTOS [Concomitant]
     Indication: DIABETES MELLITUS
     Dosage: 7.5 MG
     Route: 048
     Dates: start: 20120627
  16. ACTOS [Concomitant]
     Dosage: 15 MG
     Route: 048
  17. JANUVIA [Concomitant]
     Indication: DIABETES MELLITUS
     Dosage: 50 MG
     Route: 048
  18. JANUVIA [Concomitant]
     Dosage: 100 MG
     Route: 048
  19. JANUVIA [Concomitant]
     Dosage: 50 MG
     Route: 048
  20. MEVALOTIN [Concomitant]
     Dosage: 10 MG
     Route: 048
     Dates: start: 20120523

REACTIONS (5)
  - Platelet count decreased [Not Recovered/Not Resolved]
  - Lipase increased [Not Recovered/Not Resolved]
  - Erythema [Recovering/Resolving]
  - Constipation [Recovered/Resolved]
  - Rash [Recovered/Resolved]
